FAERS Safety Report 6299942-4 (Version None)
Quarter: 2009Q3

REPORT INFORMATION
  Report Type: 
  Country: None (occurrence: None)
  Receive Date: 20090806
  Receipt Date: 20090731
  Transmission Date: 20100115
  Serious: No
  Sender: FDA-Public Use
  Company Number: US-B.I. PHARMACEUTICALS,INC./RIDGEFIELD-2009-BP-09115BP

PATIENT
  Age: 70 Year
  Sex: Female

DRUGS (9)
  1. SPIRIVA [Suspect]
     Indication: CHRONIC OBSTRUCTIVE PULMONARY DISEASE
     Dosage: 18 MCG
     Route: 055
     Dates: start: 20040101
  2. AVAPRO [Concomitant]
     Indication: HYPERTENSION
     Route: 048
     Dates: start: 19930101
  3. SPIRONOLACTONE [Concomitant]
     Indication: HYPERTENSION
     Route: 048
     Dates: start: 19930101
  4. LEVOXYL [Concomitant]
     Indication: BASEDOW'S DISEASE
     Route: 048
     Dates: start: 19960101
  5. LEVOXYL [Concomitant]
     Indication: THYROID DISORDER
  6. PROMETRIUM [Concomitant]
     Indication: HORMONE REPLACEMENT THERAPY
     Route: 048
  7. ESTRADIOL [Concomitant]
     Indication: HORMONE REPLACEMENT THERAPY
     Route: 048
  8. SYMBICORT [Concomitant]
     Indication: ASTHMA
     Route: 048
     Dates: start: 20040101
  9. PROAIR HFA [Concomitant]
     Indication: ASTHMA
     Dates: start: 20040101

REACTIONS (7)
  - BLEPHARITIS [None]
  - CATARACT [None]
  - DRY EYE [None]
  - EYE PAIN [None]
  - HEADACHE [None]
  - PINGUECULA [None]
  - VISUAL ACUITY REDUCED [None]
